FAERS Safety Report 5515701-1 (Version None)
Quarter: 2007Q4

REPORT INFORMATION
  Report Type: 
  Country: None (occurrence: None)
  Receive Date: 20071113
  Receipt Date: 20070827
  Transmission Date: 20080405
  Serious: No
  Sender: FDA-Public Use
  Company Number: A0677846A

PATIENT
  Age: 67 Year
  Sex: Male
  Weight: 81 kg

DRUGS (3)
  1. COREG [Suspect]
     Dosage: 6.25MG PER DAY
     Route: 048
     Dates: start: 20070808
  2. ANDROGEL [Suspect]
     Indication: ERECTILE DYSFUNCTION
     Dosage: 2.5G PER DAY
     Route: 062
     Dates: start: 20070808
  3. ZIAC [Concomitant]
     Route: 065
     Dates: end: 20070807

REACTIONS (5)
  - ASTHENIA [None]
  - BLOOD PRESSURE INCREASED [None]
  - DRUG EFFECT DECREASED [None]
  - ENERGY INCREASED [None]
  - ERECTILE DYSFUNCTION [None]
